FAERS Safety Report 9472188 (Version 1)
Quarter: 2013Q3

REPORT INFORMATION
  Report Type: Spontaneous
  Country: US (occurrence: None)
  Receive Date: 20130821
  Receipt Date: 20130821
  Transmission Date: 20140515
  Serious: Yes (Disabling)
  Sender: FDA-Public Use
  Company Number: None

PATIENT
  Age: 56 Year
  Sex: Female
  Weight: 47.63 kg

DRUGS (1)
  1. LEVAQUIN [Suspect]
     Indication: AURICULAR PERICHONDRITIS
     Route: 048
     Dates: start: 20121117, end: 20121126

REACTIONS (7)
  - Cystitis [None]
  - External ear inflammation [None]
  - Bursitis [None]
  - Neutropenia [None]
  - Neuropathy peripheral [None]
  - Erythromelalgia [None]
  - Tendonitis [None]
